FAERS Safety Report 22633643 (Version 1)
Quarter: 2023Q2

REPORT INFORMATION
  Report Type: Spontaneous
  Country: US (occurrence: US)
  Receive Date: 20230623
  Receipt Date: 20230623
  Transmission Date: 20230722
  Serious: Yes (Other)
  Sender: FDA-Public Use
  Company Number: US-BRISTOL-MYERS SQUIBB COMPANY-2023-087823

PATIENT
  Age: 51 Year
  Sex: Female
  Weight: 128.82 kg

DRUGS (1)
  1. REVLIMID [Suspect]
     Active Substance: LENALIDOMIDE
     Indication: Plasma cell myeloma
     Dosage: 21D (DAY) OF 28DAYS
     Route: 048
     Dates: end: 20230602

REACTIONS (1)
  - Uterine disorder [Recovering/Resolving]
